FAERS Safety Report 8309367-5 (Version None)
Quarter: 2012Q2

REPORT INFORMATION
  Report Type: 
  Country: None (occurrence: None)
  Receive Date: 20120420
  Receipt Date: 20120405
  Transmission Date: 20120825
  Serious: Yes (Hospitalization)
  Sender: FDA-Public Use
  Company Number: 2009BI014932

PATIENT
  Age: 79 Year
  Sex: Male
  Weight: 66 kg

DRUGS (12)
  1. ALLEGRA (FEXOFENADINE) TABLET [Concomitant]
  2. CONIEL (BENIDIPINE HYDROCHLORIDE) TABLET [Concomitant]
  3. ZEVALIN [Suspect]
     Indication: MANTLE CELL LYMPHOMA STAGE I
     Dosage: 974 MBQ, SINGLE, INTRAVENOUS, 130 MBQ, SINGLE, INTRAVENOUS
     Route: 042
     Dates: start: 20090127, end: 20090127
  4. OTHER ANALGESICS AND ANTIPYRETICS (OTHER ANALGESICS AND ANTIPYRETICS) [Concomitant]
  5. DOXAZOSIN MESYLATE [Concomitant]
  6. URINORM (BENZBROMARONE) TABLET [Concomitant]
  7. ANTIHISTAMINES (ANTIHISTAMINES) [Concomitant]
  8. VALTREX [Concomitant]
  9. ZEVALIN [Suspect]
  10. MAGLAX (MAGNESIUM OXIDE) TABLET [Concomitant]
  11. RITUXAN [Suspect]
     Indication: MANTLE CELL LYMPHOMA STAGE I
     Dosage: UNK, UNK
     Dates: start: 20090127, end: 20090127
  12. RITUXAN [Suspect]
     Indication: MANTLE CELL LYMPHOMA STAGE I
     Dosage: UNK, UNK
     Dates: start: 20090120, end: 20090120

REACTIONS (4)
  - C-REACTIVE PROTEIN INCREASED [None]
  - BLOOD UREA INCREASED [None]
  - MANTLE CELL LYMPHOMA RECURRENT [None]
  - PANCYTOPENIA [None]
